FAERS Safety Report 6691860-2 (Version None)
Quarter: 2010Q2

REPORT INFORMATION
  Report Type: 
  Country: None (occurrence: None)
  Receive Date: 20100422
  Receipt Date: 20100413
  Transmission Date: 20101027
  Serious: Yes (Other)
  Sender: FDA-Public Use
  Company Number: PHHY2010RU23988

PATIENT
  Age: 62 Year
  Sex: Female

DRUGS (1)
  1. ACLASTA [Suspect]
     Dosage: 5 MG
     Route: 042

REACTIONS (5)
  - ANGINA PECTORIS [None]
  - FATIGUE [None]
  - MYALGIA [None]
  - PYREXIA [None]
  - RESPIRATORY DISORDER [None]
